FAERS Safety Report 6030061-8 (Version None)
Quarter: 2008Q4

REPORT INFORMATION
  Report Type: 
  Country: None (occurrence: None)
  Receive Date: 20081222
  Receipt Date: 20080909
  Transmission Date: 20090506
  Serious: Yes (Other)
  Sender: FDA-Public Use
  Company Number: US-WYE-H05964108

PATIENT
  Sex: Female
  Weight: 68.1 kg

DRUGS (1)
  1. PRISTIQ [Suspect]
     Indication: MAJOR DEPRESSION
     Dosage: 50 MG - FREQUENCY UNSPECIFIED

REACTIONS (3)
  - CONDITION AGGRAVATED [None]
  - MECHANICAL URTICARIA [None]
  - PSORIASIS [None]
